FAERS Safety Report 9648114 (Version 1)
Quarter: 2013Q4

REPORT INFORMATION
  Report Type: Spontaneous
  Country: US (occurrence: US)
  Receive Date: 20131028
  Receipt Date: 20131028
  Transmission Date: 20140711
  Serious: No
  Sender: FDA-Public Use
  Company Number: US-009507513-1310USA010305

PATIENT
  Age: 54 Year
  Sex: Male

DRUGS (1)
  1. JANUMET [Suspect]
     Dosage: 1 PILL, BID
     Route: 048
     Dates: start: 2008

REACTIONS (2)
  - Blood glucose increased [Recovered/Resolved with Sequelae]
  - Dizziness [Recovered/Resolved with Sequelae]
